FAERS Safety Report 10552481 (Version 1)
Quarter: 2014Q4

REPORT INFORMATION
  Report Type: Spontaneous
  Country: US (occurrence: None)
  Receive Date: 20141023
  Receipt Date: 20141023
  Transmission Date: 20150529
  Serious: No
  Sender: FDA-Public Use
  Company Number: AP356-01324-SPO-US

PATIENT
  Age: 37 Year
  Sex: Female
  Weight: 104 kg

DRUGS (3)
  1. IRON SUPPLEMENT [Concomitant]
     Active Substance: IRON
  2. BELVIQ [Suspect]
     Active Substance: LORCASERIN HYDROCHLORIDE
     Indication: WEIGHT DECREASED
     Dosage: 20 MG, 2 IN 1 D, ORAL
     Route: 048
     Dates: start: 20140903, end: 20140903
  3. VITAMIN D [Concomitant]
     Active Substance: CHOLECALCIFEROL

REACTIONS (4)
  - Nausea [None]
  - Hyperhidrosis [None]
  - Heart rate increased [None]
  - Chest discomfort [None]

NARRATIVE: CASE EVENT DATE: 20140903
